FAERS Safety Report 22635874 (Version 1)
Quarter: 2023Q2

REPORT INFORMATION
  Report Type: Spontaneous
  Country: US (occurrence: None)
  Receive Date: 20230623
  Receipt Date: 20230623
  Transmission Date: 20230722
  Serious: Yes (Life-Threatening, Hospitalization)
  Sender: FDA-Public Use
  Company Number: 2023A145512

PATIENT
  Age: 68 Year
  Sex: Female

DRUGS (2)
  1. OMEPRAZOLE [Interacting]
     Active Substance: OMEPRAZOLE
     Indication: Reflux gastritis
     Route: 048
  2. IRON [Interacting]
     Active Substance: IRON
     Dosage: THREE TIMES DAILY

REACTIONS (2)
  - Drug interaction [Unknown]
  - Iron deficiency anaemia [Unknown]
